FAERS Safety Report 17888301 (Version 1)
Quarter: 2020Q2

REPORT INFORMATION
  Report Type: Spontaneous
  Country: US (occurrence: US)
  Receive Date: 20200612
  Receipt Date: 20200612
  Transmission Date: 20200714
  Serious: Yes (Death, Hospitalization)
  Sender: FDA-Public Use
  Company Number: US-EMCURE PHARMACEUTICALS LTD-2020-EPL-000712

PATIENT
  Age: 82 Year
  Sex: Male

DRUGS (7)
  1. VITAMIN K [Concomitant]
     Active Substance: PHYTONADIONE
     Indication: PROCOAGULANT THERAPY
  2. LEVETIRACETAM. [Concomitant]
     Active Substance: LEVETIRACETAM
     Indication: PARTIAL SEIZURES
  3. PROTHROMBIN COMPLEX CONCENTRATE NOS [Concomitant]
     Active Substance: COAGULATION FACTOR IX HUMAN\COAGULATION FACTOR VII HUMAN\COAGULATION FACTOR X HUMAN\PROTHROMBIN
     Indication: PROCOAGULANT THERAPY
  4. METOPROLOL. [Suspect]
     Active Substance: METOPROLOL
     Indication: PRODUCT USED FOR UNKNOWN INDICATION
     Route: 065
  5. LORAZEPAM. [Interacting]
     Active Substance: LORAZEPAM
     Indication: PARTIAL SEIZURES
  6. DILTIAZEM. [Interacting]
     Active Substance: DILTIAZEM
     Indication: PRODUCT USED FOR UNKNOWN INDICATION
  7. LACOSAMIDE. [Interacting]
     Active Substance: LACOSAMIDE
     Indication: PARTIAL SEIZURES
     Dosage: 300 MILLIGRAM, TOTAL (LOADING DOSE)
     Route: 042

REACTIONS (2)
  - Atrioventricular block complete [Fatal]
  - Drug interaction [Fatal]
